FAERS Safety Report 8655186 (Version 4)
Quarter: 2012Q4

REPORT INFORMATION
  Report Type: Report from Study
  Country: DE (occurrence: JP)
  Receive Date: 20120709
  Receipt Date: 20120910
  Transmission Date: 20130627
  Serious: Yes (Hospitalization)
  Sender: FDA-Public Use
  Company Number: JP-BRISTOL-MYERS SQUIBB COMPANY-16741811

PATIENT
  Age: 66 Year
  Sex: Male
  Weight: 56 kg

DRUGS (11)
  1. CETUXIMAB [Suspect]
     Indication: GASTRIC CANCER
     Dosage: Form: 5mg/ml.cycle 6 day22
     Route: 042
     Dates: start: 20111208, end: 20120621
  2. CISPLATIN [Suspect]
     Indication: GASTRIC CANCER
     Dosage: on day 8 of each cycle
     Route: 042
     Dates: start: 20111215
  3. TS-1 [Suspect]
     Indication: GASTRIC CANCER
     Dosage: Caps
     Route: 048
     Dates: start: 20111208
  4. MINOMYCIN [Concomitant]
     Indication: RASH
     Dosage: capsule
     Dates: start: 20120126
  5. AMARYL [Concomitant]
     Indication: DIABETES MELLITUS
     Dosage: tab
     Dates: start: 20120216, end: 20120628
  6. SODIUM CHLORIDE [Concomitant]
     Indication: BLOOD SODIUM ABNORMAL
     Dates: start: 20120126
  7. HIRUDOID [Concomitant]
     Indication: DRY SKIN PROPHYLAXIS
     Dosage: 0.3%
     Dates: start: 20111208
  8. MYSER [Concomitant]
     Indication: RASH
     Dosage: 0.05%
     Dates: start: 20111221
  9. AZUNOL [Concomitant]
     Indication: STOMATITIS
     Dosage: gargle
4%
     Dates: start: 20111208
  10. LIDOMEX [Concomitant]
     Indication: RASH
     Dates: start: 20120315
  11. SODIUM PICOSULFATE [Concomitant]
     Indication: CONSTIPATION PROPHYLAXIS
     Route: 048
     Dates: start: 20111216

REACTIONS (2)
  - Renal artery thrombosis [Not Recovered/Not Resolved]
  - Decreased appetite [Not Recovered/Not Resolved]
